FAERS Safety Report 8184530-5 (Version None)
Quarter: 2012Q1

REPORT INFORMATION
  Report Type: 
  Country: None (occurrence: None)
  Receive Date: 20120301
  Receipt Date: 20120217
  Transmission Date: 20120608
  Serious: Yes (Other)
  Sender: FDA-Public Use
  Company Number: JPI-P-019775

PATIENT
  Age: 17 Year
  Sex: Female
  Weight: 59.8748 kg

DRUGS (5)
  1. XYREM [Suspect]
     Indication: NARCOLEPSY
     Dosage: SEE IMAGE
     Route: 048
     Dates: start: 20120203
  2. XYREM [Suspect]
     Indication: NARCOLEPSY
     Dosage: SEE IMAGE
     Route: 048
     Dates: start: 20120106
  3. XYREM [Suspect]
     Indication: NARCOLEPSY
     Dosage: SEE IMAGE
     Route: 048
     Dates: end: 20120203
  4. GLARGINE INSULIN [Suspect]
     Indication: DIABETES MELLITUS
     Dosage: 30 IU (30 IU,1 IN 1 D),SUBCUTANEOUS, 20 IU (20 IU,1 IN 1 D),SUBCUTANEOUS
     Route: 058
     Dates: start: 20120204
  5. GLARGINE INSULIN [Suspect]
     Indication: DIABETES MELLITUS
     Dosage: 30 IU (30 IU,1 IN 1 D),SUBCUTANEOUS, 20 IU (20 IU,1 IN 1 D),SUBCUTANEOUS
     Route: 058
     Dates: end: 20120203

REACTIONS (7)
  - BLOOD GLUCOSE DECREASED [None]
  - DRY THROAT [None]
  - NAUSEA [None]
  - AMNESIA [None]
  - CONFUSIONAL STATE [None]
  - WEIGHT DECREASED [None]
  - HYPERHIDROSIS [None]
